FAERS Safety Report 11394834 (Version 1)
Quarter: 2015Q3

REPORT INFORMATION
  Report Type: Spontaneous
  Country: US (occurrence: None)
  Receive Date: 20150817
  Receipt Date: 20150817
  Transmission Date: 20151125
  Serious: Yes (Other)
  Sender: FDA-Public Use
  Company Number: None

PATIENT
  Age: 29 Year
  Sex: Female

DRUGS (1)
  1. RISPERIDONE. [Suspect]
     Active Substance: RISPERIDONE
     Dosage: TAKEN BY MOUTH
     Route: 048
     Dates: start: 20150810, end: 20150812

REACTIONS (8)
  - Pain in extremity [None]
  - Dizziness [None]
  - Extrapyramidal disorder [None]
  - Dysarthria [None]
  - Headache [None]
  - Feeling abnormal [None]
  - Vision blurred [None]
  - Musculoskeletal stiffness [None]

NARRATIVE: CASE EVENT DATE: 20150813
